FAERS Safety Report 19150691 (Version 2)
Quarter: 2021Q2

REPORT INFORMATION
  Report Type: Spontaneous
  Country: IT (occurrence: IT)
  Receive Date: 20210418
  Receipt Date: 20210423
  Transmission Date: 20210717
  Serious: Yes (Disabling, Other)
  Sender: FDA-Public Use
  Company Number: IT-SA-2021SA123079

PATIENT
  Age: 36 Year
  Sex: Male

DRUGS (1)
  1. ALEMTUZUMAB [Suspect]
     Active Substance: ALEMTUZUMAB
     Indication: RELAPSING-REMITTING MULTIPLE SCLEROSIS
     Dosage: UNK

REACTIONS (7)
  - Vitritis infective [Recovering/Resolving]
  - Necrotising retinitis [Recovering/Resolving]
  - Varicella zoster virus infection [Unknown]
  - Blindness [Unknown]
  - Iridocyclitis [Recovering/Resolving]
  - Infection reactivation [Unknown]
  - Retinal detachment [Recovering/Resolving]
